FAERS Safety Report 13422514 (Version 1)
Quarter: 2017Q2

REPORT INFORMATION
  Report Type: Spontaneous
  Country: US (occurrence: US)
  Receive Date: 20170407
  Receipt Date: 20170407
  Transmission Date: 20170830
  Serious: No
  Sender: FDA-Public Use
  Company Number: None

PATIENT
  Sex: Male

DRUGS (1)
  1. SUTENT [Suspect]
     Active Substance: SUNITINIB MALATE
     Dosage: 50MG DAILY FOR 4 WEEKS ON, 2 WEEKS OFF ORAL
     Route: 048
     Dates: start: 20161021, end: 201703

REACTIONS (2)
  - Blister [None]
  - Ageusia [None]
